FAERS Safety Report 5814725-4 (Version None)
Quarter: 2008Q3

REPORT INFORMATION
  Report Type: 
  Country: None (occurrence: None)
  Receive Date: 20080718
  Receipt Date: 20070621
  Transmission Date: 20090109
  Serious: No
  Sender: FDA-Public Use
  Company Number: US-KINGPHARMUSA00001-K200700493

PATIENT

DRUGS (3)
  1. LEVOXYL [Suspect]
     Indication: HYPOTHYROIDISM
     Dosage: 75 MCG, QD
     Route: 048
     Dates: start: 20010101
  2. LEVOXYL [Suspect]
     Dosage: 88 MCG, QD
     Route: 048
     Dates: end: 20050101
  3. LEVOXYL [Suspect]
     Dosage: 75 MCG, QD
     Route: 048
     Dates: start: 20050101

REACTIONS (7)
  - ABDOMINAL PAIN UPPER [None]
  - BLOOD PRESSURE DECREASED [None]
  - DRUG EFFECT DECREASED [None]
  - MUSCULOSKELETAL DISCOMFORT [None]
  - SOMNOLENCE [None]
  - VISION BLURRED [None]
  - VISUAL IMPAIRMENT [None]
